FAERS Safety Report 13147063 (Version 1)
Quarter: 2017Q1

REPORT INFORMATION
  Report Type: Spontaneous
  Country: CA (occurrence: CA)
  Receive Date: 20170125
  Receipt Date: 20170125
  Transmission Date: 20170428
  Serious: Yes (Life-Threatening, Other)
  Sender: FDA-Public Use
  Company Number: CA-TEVA-732457ACC

PATIENT
  Age: 61 Year
  Sex: Female

DRUGS (3)
  1. CLONAZEPAM. [Suspect]
     Active Substance: CLONAZEPAM
     Dosage: 1 DOSAGE FORMS DAILY;
  2. WELLBUTRIN [Concomitant]
     Active Substance: BUPROPION HYDROCHLORIDE
  3. CLONAZEPAM. [Suspect]
     Active Substance: CLONAZEPAM
     Indication: SLEEP DISORDER
     Route: 065

REACTIONS (6)
  - Feeling abnormal [Recovered/Resolved]
  - Somnolence [Recovered/Resolved]
  - Depressed mood [Recovered/Resolved]
  - Suicide attempt [Recovered/Resolved]
  - Feeling drunk [Recovered/Resolved]
  - Suicidal ideation [Recovered/Resolved]
